FAERS Safety Report 19049675 (Version 2)
Quarter: 2021Q2

REPORT INFORMATION
  Report Type: Spontaneous
  Country: US (occurrence: US)
  Receive Date: 20210323
  Receipt Date: 20210420
  Transmission Date: 20210717
  Serious: Yes (Hospitalization, Other)
  Sender: FDA-Public Use
  Company Number: US-GILEAD-2021-0521883

PATIENT
  Age: 6 Year
  Sex: Male
  Weight: 15.7 kg

DRUGS (24)
  1. GLYCOPYRROLATE. [Concomitant]
     Active Substance: GLYCOPYRROLATE
  2. ALBUTEROL [SALBUTAMOL] [Concomitant]
     Active Substance: ALBUTEROL
  3. CEFTRIAXONE. [Concomitant]
     Active Substance: CEFTRIAXONE
  4. BACLOFEN. [Concomitant]
     Active Substance: BACLOFEN
  5. LACTOBACILLUS RHAMNOSUS [Concomitant]
     Active Substance: LACTOBACILLUS RHAMNOSUS
  6. CHOLECALCIFEROL [Concomitant]
     Active Substance: CHOLECALCIFEROL
  7. LIDOCAINE. [Concomitant]
     Active Substance: LIDOCAINE
  8. FLUTICASONE. [Concomitant]
     Active Substance: FLUTICASONE
  9. CEFEPIME [Concomitant]
     Active Substance: CEFEPIME HYDROCHLORIDE
  10. CLONAZEPAM. [Suspect]
     Active Substance: CLONAZEPAM
     Indication: SEIZURE
     Dosage: UNK
     Route: 065
  11. PLASMA [Concomitant]
     Active Substance: HUMAN PLASMA
     Dosage: UNK
     Dates: start: 20210111
  12. OMEPRAZOLE. [Concomitant]
     Active Substance: OMEPRAZOLE
  13. CYPROHEPTADINE. [Concomitant]
     Active Substance: CYPROHEPTADINE
  14. NORMAL SALINE [Concomitant]
     Active Substance: SODIUM CHLORIDE
  15. ACETAMINOPHEN. [Concomitant]
     Active Substance: ACETAMINOPHEN
  16. IPRATROPIUM [Concomitant]
     Active Substance: IPRATROPIUM
  17. REMDESIVIR. [Suspect]
     Active Substance: REMDESIVIR
     Indication: COVID-19
     Dosage: 160 MG, ONCE
     Route: 042
     Dates: start: 20210110, end: 20210110
  18. MELATONIN [Concomitant]
     Active Substance: MELATONIN
  19. MIRALAX [Concomitant]
     Active Substance: POLYETHYLENE GLYCOL 3350
  20. FAMOTIDINE. [Concomitant]
     Active Substance: FAMOTIDINE
  21. ROBINUL [Concomitant]
     Active Substance: GLYCOPYRROLATE
  22. REMDESIVIR. [Suspect]
     Active Substance: REMDESIVIR
     Dosage: 80 MG, QD X 4 DAYS
     Route: 042
     Dates: start: 20210111, end: 20210114
  23. DEPAKOTE [Concomitant]
     Active Substance: DIVALPROEX SODIUM
  24. AUGMENTIN [Concomitant]
     Active Substance: AMOXICILLIN\CLAVULANATE POTASSIUM

REACTIONS (3)
  - Pneumonia aspiration [Recovered/Resolved]
  - Lethargy [Recovered/Resolved]
  - Seizure [Unknown]

NARRATIVE: CASE EVENT DATE: 20210114
